FAERS Safety Report 7389040-0 (Version None)
Quarter: 2011Q2

REPORT INFORMATION
  Report Type: 
  Country: None (occurrence: None)
  Receive Date: 20110401
  Receipt Date: 20110322
  Transmission Date: 20111010
  Serious: Yes (Other)
  Sender: FDA-Public Use
  Company Number: US-BAXTER-2011BH002185

PATIENT
  Age: 65 Year
  Sex: Male
  Weight: 75 kg

DRUGS (13)
  1. HEPARIN SODIUM INJECTION [Suspect]
     Route: 042
     Dates: start: 20080125, end: 20080125
  2. HEPARIN SODIUM INJECTION [Suspect]
     Route: 042
     Dates: start: 20080124, end: 20080124
  3. HEPARIN SODIUM INJECTION [Suspect]
     Route: 065
     Dates: start: 20080101, end: 20080101
  4. HEPARIN SODIUM INJECTION [Suspect]
     Indication: CORONARY ARTERY BYPASS
     Route: 042
     Dates: start: 20080123, end: 20080123
  5. LOPRESSOR [Concomitant]
     Indication: PRODUCT USED FOR UNKNOWN INDICATION
     Route: 065
  6. HEPARIN SODIUM INJECTION [Suspect]
     Route: 042
     Dates: start: 20080125, end: 20080125
  7. HEPARIN SODIUM INJECTION [Suspect]
     Indication: CATHETERISATION CARDIAC
     Route: 042
     Dates: start: 20080123, end: 20080123
  8. LIPITOR [Concomitant]
     Indication: PRODUCT USED FOR UNKNOWN INDICATION
     Route: 065
  9. HEPARIN SODIUM INJECTION [Suspect]
     Route: 042
     Dates: start: 20080124, end: 20080124
  10. HEPARIN SODIUM INJECTION [Suspect]
     Route: 065
     Dates: start: 20080101, end: 20080101
  11. ASPIRIN [Concomitant]
     Indication: PRODUCT USED FOR UNKNOWN INDICATION
     Route: 065
  12. COZAAR [Concomitant]
     Indication: PRODUCT USED FOR UNKNOWN INDICATION
     Route: 065
  13. ZOCOR [Concomitant]
     Indication: PRODUCT USED FOR UNKNOWN INDICATION
     Route: 065

REACTIONS (8)
  - RESPIRATORY FAILURE [None]
  - CARDIAC FAILURE [None]
  - ARRHYTHMIA [None]
  - CARDIOGENIC SHOCK [None]
  - INFARCTION [None]
  - DRUG HYPERSENSITIVITY [None]
  - THROMBOCYTOPENIA [None]
  - BLOOD PRESSURE FLUCTUATION [None]
